FAERS Safety Report 4534440-7 (Version None)
Quarter: 2004Q4

REPORT INFORMATION
  Report Type: 
  Country: None (occurrence: None)
  Receive Date: 20041222
  Receipt Date: 20041215
  Transmission Date: 20050328
  Serious: Yes (Hospitalization, Other)
  Sender: FDA-Public Use
  Company Number: 200419648US

PATIENT
  Age: 10 Year
  Sex: Male

DRUGS (2)
  1. LANTUS [Suspect]
     Indication: DIABETES MELLITUS INSULIN-DEPENDENT
     Dosage: DOSE UNIT: UNITS
     Route: 058
     Dates: start: 20040801
  2. NOVOLOG [Concomitant]

REACTIONS (3)
  - CONVULSION [None]
  - EYE MOVEMENT DISORDER [None]
  - MUSCLE TWITCHING [None]
